FAERS Safety Report 8577722-4 (Version None)
Quarter: 2012Q3

REPORT INFORMATION
  Report Type: 
  Country: None (occurrence: None)
  Receive Date: 20120808
  Receipt Date: 20120806
  Transmission Date: 20120928
  Serious: Yes (Other)
  Sender: FDA-Public Use
  Company Number: US-AMGEN-USASP2012038368

PATIENT
  Sex: Female
  Weight: 47.619 kg

DRUGS (4)
  1. COUMADIN [Concomitant]
     Indication: ATRIAL FIBRILLATION
     Dosage: 1 MG, QD
     Route: 048
  2. RAMIPRIL [Concomitant]
     Indication: ATRIAL FIBRILLATION
     Dosage: 10 G, QD
     Route: 048
  3. NORVASC [Concomitant]
     Indication: ATRIAL FIBRILLATION
     Dosage: 5 MG, QD
     Route: 048
  4. PROLIA [Suspect]
     Indication: OSTEOPOROSIS POSTMENOPAUSAL
     Dosage: 60 MG, Q6MO
     Route: 058
     Dates: start: 20110420, end: 20111222

REACTIONS (2)
  - OSTEONECROSIS OF JAW [None]
  - DEVICE FAILURE [None]
